FAERS Safety Report 10349872 (Version 1)
Quarter: 2014Q3

REPORT INFORMATION
  Report Type: Report from Study
  Country: US (occurrence: US)
  Receive Date: 20140730
  Receipt Date: 20140730
  Transmission Date: 20150326
  Serious: Yes (Death, Hospitalization, Other)
  Sender: FDA-Public Use
  Company Number: US-ASTELLAS-2014US009034

PATIENT
  Sex: Female

DRUGS (2)
  1. ERLOTINIB [Suspect]
     Active Substance: ERLOTINIB
     Indication: NON-SMALL CELL LUNG CANCER STAGE IV
     Route: 048
     Dates: start: 2006, end: 2006
  2. ERLOTINIB [Suspect]
     Active Substance: ERLOTINIB
     Indication: MALIGNANT RESPIRATORY TRACT NEOPLASM

REACTIONS (4)
  - Dyspnoea [Unknown]
  - Respiratory failure [Fatal]
  - Malignant neoplasm progression [Fatal]
  - Pleural effusion [Unknown]

NARRATIVE: CASE EVENT DATE: 2006
